FAERS Safety Report 6794954-6 (Version None)
Quarter: 2010Q2

REPORT INFORMATION
  Report Type: 
  Country: None (occurrence: None)
  Receive Date: 20100625
  Receipt Date: 20100614
  Transmission Date: 20101027
  Serious: Yes (Hospitalization)
  Sender: FDA-Public Use
  Company Number: JP-PFIZER INC-2010078308

PATIENT
  Age: 75 Year
  Sex: Male

DRUGS (2)
  1. CAMPTOSAR [Suspect]
     Indication: NON-SMALL CELL LUNG CANCER
     Dosage: 100 MG, UNK
     Route: 041
     Dates: start: 20100604, end: 20100611
  2. GEMZAR [Concomitant]
     Indication: NON-SMALL CELL LUNG CANCER
     Dosage: 1000 MG, UNK
     Route: 041
     Dates: start: 20100604, end: 20100611

REACTIONS (2)
  - ENTEROCOLITIS HAEMORRHAGIC [None]
  - THROMBOCYTOPENIA [None]
